FAERS Safety Report 4530512-1 (Version None)
Quarter: 2004Q4

REPORT INFORMATION
  Report Type: 
  Country: None (occurrence: None)
  Receive Date: 20041215
  Receipt Date: 20041202
  Transmission Date: 20050328
  Serious: Yes (Hospitalization)
  Sender: FDA-Public Use
  Company Number: 2004-BP-06148BP(1)

PATIENT
  Sex: Female

DRUGS (7)
  1. COMBIVENT [Suspect]
     Indication: BRONCHITIS
     Dosage: 8 PUF (SEE TEXT, 2 PUFFS QID), IH
     Route: 055
     Dates: start: 20030301
  2. COMBIVENT [Suspect]
     Indication: EMPHYSEMA
     Dosage: 8 PUF (SEE TEXT, 2 PUFFS QID), IH
     Route: 055
     Dates: start: 20030301
  3. ALBUTEROL [Suspect]
  4. PREMARIN [Concomitant]
  5. PREVACID [Concomitant]
  6. CELLUVASC EYE LUBRICANT [Concomitant]
  7. FML EYE OINTMENT [Concomitant]

REACTIONS (12)
  - ABDOMINAL DISCOMFORT [None]
  - ABDOMINAL DISTENSION [None]
  - DIARRHOEA [None]
  - DRY MOUTH [None]
  - DYSPNOEA [None]
  - FLATULENCE [None]
  - HOARSENESS [None]
  - INSOMNIA [None]
  - IRRITABLE BOWEL SYNDROME [None]
  - RASH [None]
  - SALIVA ALTERED [None]
  - TINNITUS [None]
